FAERS Safety Report 21172117 (Version 4)
Quarter: 2022Q3

REPORT INFORMATION
  Report Type: Report from Study
  Country: CN (occurrence: CN)
  Receive Date: 20220804
  Receipt Date: 20220919
  Transmission Date: 20221027
  Serious: Yes (Life-Threatening, Hospitalization)
  Sender: FDA-Public Use
  Company Number: CN-G1 THERAPEUTICS-2022G1CN0000185

PATIENT

DRUGS (11)
  1. TRILACICLIB [Suspect]
     Active Substance: TRILACICLIB
     Indication: Myelosuppression
     Dosage: 240 MG/M2 (410.5 MG) ADMINISTERED ON DAY 1 AND 8 OF A 21-DAY CYCLE
     Route: 041
     Dates: start: 20220601, end: 20220713
  2. CARBOPLATIN [Suspect]
     Active Substance: CARBOPLATIN
     Indication: Triple negative breast cancer
     Dosage: AUC2 (250 MG) ADMINISTERED ON DAY 1 AND 8 OF A 21-DAY CYCLE
     Route: 041
     Dates: start: 20220601, end: 20220713
  3. GEMCITABINE [Suspect]
     Active Substance: GEMCITABINE
     Indication: Triple negative breast cancer
     Dosage: 1000 MG/M2 (1710 MG) ADMINISTERED ON DAY 1 AND 8 OF A 21-DAY CYCLE
     Route: 041
     Dates: start: 20220601, end: 20220713
  4. TROPISETRON [Concomitant]
     Active Substance: TROPISETRON
     Indication: Prophylaxis
     Dosage: 4 MG, QD
     Route: 042
     Dates: start: 20220601, end: 20220601
  5. TROPISETRON [Concomitant]
     Active Substance: TROPISETRON
     Dosage: 4 MG, QD
     Route: 042
     Dates: start: 20220608, end: 20220608
  6. TROPISETRON [Concomitant]
     Active Substance: TROPISETRON
     Dosage: 5 MG, QD
     Route: 042
     Dates: start: 20220622, end: 20220622
  7. TROPISETRON [Concomitant]
     Active Substance: TROPISETRON
     Dosage: 4 MG, QD
     Route: 042
     Dates: start: 20220629, end: 20220629
  8. CIMETIDINE [Concomitant]
     Active Substance: CIMETIDINE
     Indication: Prophylaxis
     Dosage: 0.4 G, QD
     Route: 042
     Dates: start: 20220601, end: 20220601
  9. CIMETIDINE [Concomitant]
     Active Substance: CIMETIDINE
     Dosage: 0.4 G, QD
     Route: 042
     Dates: start: 20220608, end: 20220608
  10. CIMETIDINE [Concomitant]
     Active Substance: CIMETIDINE
     Dosage: 0.4 G, QD
     Route: 042
     Dates: start: 20220622, end: 20220622
  11. CIMETIDINE [Concomitant]
     Active Substance: CIMETIDINE
     Dosage: 0.4 G, QD
     Route: 043
     Dates: start: 20220629, end: 20220629

REACTIONS (1)
  - Anaemia [Recovering/Resolving]

NARRATIVE: CASE EVENT DATE: 20220729
